FAERS Safety Report 4357884-5 (Version None)
Quarter: 2004Q2

REPORT INFORMATION
  Report Type: 
  Country: None (occurrence: None)
  Receive Date: 20040514
  Receipt Date: 20040429
  Transmission Date: 20050107
  Serious: Yes (Hospitalization)
  Sender: FDA-Public Use
  Company Number: PHNU2004DE01680

PATIENT
  Sex: Female

DRUGS (1)
  1. SANDOSTATIN LAR [Suspect]
     Dosage: 20 MG/MONTH
     Route: 058

REACTIONS (6)
  - DIARRHOEA [None]
  - DRUG HYPERSENSITIVITY [None]
  - MEDICATION ERROR [None]
  - RENAL FAILURE [None]
  - RENAL PAIN [None]
  - URINARY RETENTION [None]
